FAERS Safety Report 7606533-9 (Version None)
Quarter: 2011Q3

REPORT INFORMATION
  Report Type: 
  Country: None (occurrence: None)
  Receive Date: 20110713
  Receipt Date: 20110704
  Transmission Date: 20111222
  Serious: Yes (Other)
  Sender: FDA-Public Use
  Company Number: TR-PFIZER INC-2011152674

PATIENT
  Age: 42 Year
  Sex: Female

DRUGS (2)
  1. METHYLPREDNISOLONE ACETATE [Suspect]
     Dosage: 80 MG, IN A 20 ML SOLUTION
     Route: 008
  2. LIDOCAINE [Suspect]
     Dosage: 1 %, UNK

REACTIONS (1)
  - UTERINE HAEMORRHAGE [None]
